FAERS Safety Report 4916479-2 (Version None)
Quarter: 2006Q1

REPORT INFORMATION
  Report Type: 
  Country: None (occurrence: None)
  Receive Date: 20060214
  Receipt Date: 20060201
  Transmission Date: 20060701
  Serious: Yes (Hospitalization)
  Sender: FDA-Public Use
  Company Number: 2006018346

PATIENT
  Age: 65 Year
  Sex: Male

DRUGS (7)
  1. PREDNISOLONE [Suspect]
     Indication: ILL-DEFINED DISORDER
     Dosage: 10 MG (10 MG, 1 IN 1 D), ORAL
     Route: 048
  2. ASPIRIN [Suspect]
     Indication: PROPHYLAXIS
     Dosage: 75 MG (75 MG, 1 IN 1 D), ORAL
     Route: 048
  3. ACETAMINOPHEN [Concomitant]
  4. THERALEN (ALIMEMAZINE TARTRATE) [Concomitant]
  5. AMITRIPTYLINE HCL [Concomitant]
  6. METOPROLOL TARTRATE [Concomitant]
  7. MORPHINE [Concomitant]

REACTIONS (3)
  - EROSIVE DUODENITIS [None]
  - GASTRIC ULCER [None]
  - GASTRITIS EROSIVE [None]
